FAERS Safety Report 22023500 (Version 1)
Quarter: 2023Q1

REPORT INFORMATION
  Report Type: Spontaneous
  Country: US (occurrence: US)
  Receive Date: 20230223
  Receipt Date: 20230223
  Transmission Date: 20230418
  Serious: No
  Sender: FDA-Public Use
  Company Number: US-SA-SAC20230222000154

PATIENT
  Sex: Female

DRUGS (22)
  1. AUBAGIO [Suspect]
     Active Substance: TERIFLUNOMIDE
     Indication: Multiple sclerosis
     Dosage: 1 DF, QD
     Route: 048
  2. ALBUTEROL SULFATE [Concomitant]
     Active Substance: ALBUTEROL SULFATE
  3. AMLODIPINE BESYLATE [Concomitant]
     Active Substance: AMLODIPINE BESYLATE
  4. BAQSIMI [Concomitant]
     Active Substance: GLUCAGON
     Dosage: 3MG/DOSE
  5. BUDESONIDE [Concomitant]
     Active Substance: BUDESONIDE
  6. CIPROFLOXACIN HYDROCHLORIDE [Concomitant]
     Active Substance: CIPROFLOXACIN HYDROCHLORIDE
  7. DICYCLOMINE [Concomitant]
     Active Substance: DICYCLOMINE HYDROCHLORIDE
  8. FUROSEMIDE [Concomitant]
     Active Substance: FUROSEMIDE
  9. GABAPENTIN [Concomitant]
     Active Substance: GABAPENTIN
  10. IMIPRAMINE HYDROCHLORIDE [Concomitant]
     Active Substance: IMIPRAMINE HYDROCHLORIDE
  11. KETOCONAZOLE [Concomitant]
     Active Substance: KETOCONAZOLE
  12. REYVOW [Concomitant]
     Active Substance: LASMIDITAN
  13. ROSUVASTATIN [Concomitant]
     Active Substance: ROSUVASTATIN
  14. SERTRALINE HYDROCHLORIDE [Concomitant]
     Active Substance: SERTRALINE HYDROCHLORIDE
  15. SUCRALFATE [Concomitant]
     Active Substance: SUCRALFATE
  16. TETRACYCLINE [Concomitant]
     Active Substance: TETRACYCLINE
  17. TOLTERODINE [Concomitant]
     Active Substance: TOLTERODINE
  18. TOPIRAMATE [Concomitant]
     Active Substance: TOPIRAMATE
  19. TOUJEO MAX [Concomitant]
     Active Substance: INSULIN GLARGINE
  20. TRAZODONE HCL [Concomitant]
     Active Substance: TRAZODONE HYDROCHLORIDE
  21. XARELTO [Concomitant]
     Active Substance: RIVAROXABAN
  22. LEVOTHYROXINE [Concomitant]
     Active Substance: LEVOTHYROXINE

REACTIONS (1)
  - Wound [Unknown]
